FAERS Safety Report 8965542 (Version 1)
Quarter: 2012Q4

REPORT INFORMATION
  Report Type: Spontaneous
  Country: US (occurrence: None)
  Receive Date: 20121212
  Receipt Date: 20121212
  Transmission Date: 20130627
  Serious: Yes (Life-Threatening, Hospitalization)
  Sender: FDA-Public Use
  Company Number: None

PATIENT
  Age: 18 Year
  Sex: Female
  Weight: 61.87 kg

DRUGS (2)
  1. LAMICTAL [Suspect]
     Indication: JUVENILE MYOCLONIC EPILEPSY
     Dosage: 25mg daily po
     Route: 048
     Dates: start: 20121115, end: 20121129
  2. LAMICTAL [Suspect]
     Dosage: 50  daily  po
     Route: 048
     Dates: start: 20121130, end: 20121206

REACTIONS (1)
  - Drug hypersensitivity [None]
